FAERS Safety Report 24907797 (Version 2)
Quarter: 2025Q1

REPORT INFORMATION
  Report Type: Spontaneous
  Country: US (occurrence: US)
  Receive Date: 20250131
  Receipt Date: 20250309
  Transmission Date: 20250409
  Serious: No
  Sender: VIIV
  Company Number: US-VIIV HEALTHCARE-US2025AMR009730

PATIENT
  Age: 38 Year
  Sex: Male
  Weight: 121 kg

DRUGS (1)
  1. DOVATO [Suspect]
     Active Substance: DOLUTEGRAVIR SODIUM\LAMIVUDINE
     Indication: HIV infection
     Route: 048
     Dates: start: 2022, end: 20241120

REACTIONS (1)
  - Blood HIV RNA increased [Unknown]

NARRATIVE: CASE EVENT DATE: 20241113
